FAERS Safety Report 8510800-4 (Version None)
Quarter: 2012Q3

REPORT INFORMATION
  Report Type: 
  Country: None (occurrence: None)
  Receive Date: 20120716
  Receipt Date: 20120709
  Transmission Date: 20120928
  Serious: No
  Sender: FDA-Public Use
  Company Number: US-PFIZER INC-2012164363

PATIENT
  Sex: Female
  Weight: 79 kg

DRUGS (3)
  1. CYMBALTA [Concomitant]
     Indication: FIBROMYALGIA
     Dosage: UNK
  2. LYRICA [Suspect]
     Indication: FIBROMYALGIA
     Dosage: 150 MG, 2X/DAY
     Route: 048
     Dates: start: 20110101
  3. CYMBALTA [Concomitant]
     Indication: DEPRESSION

REACTIONS (2)
  - PRURITUS [None]
  - RASH [None]
